FAERS Safety Report 24159029 (Version 2)
Quarter: 2024Q3

REPORT INFORMATION
  Report Type: Spontaneous
  Country: US (occurrence: US)
  Receive Date: 20240731
  Receipt Date: 20240821
  Transmission Date: 20241017
  Serious: Yes (Death)
  Sender: KARYOPHARM THERAPEUTICS
  Company Number: US-KARYOPHARM-2024KPT001363

PATIENT

DRUGS (14)
  1. XPOVIO [Suspect]
     Active Substance: SELINEXOR
     Indication: Plasma cell myeloma
     Dosage: 60 MG, WEEKLY
     Route: 048
     Dates: start: 20240722
  2. AMLODIPINE BESYLATE [Concomitant]
     Active Substance: AMLODIPINE BESYLATE
  3. ATORVASTATIN CALCIUM [Concomitant]
     Active Substance: ATORVASTATIN CALCIUM
  4. CLOPIDOGREL BISULFATE [Concomitant]
     Active Substance: CLOPIDOGREL BISULFATE
  5. DEXAMETHASONE [Concomitant]
     Active Substance: DEXAMETHASONE
  6. HUMALOG [Concomitant]
     Active Substance: INSULIN LISPRO
  7. LINZESS [Concomitant]
     Active Substance: LINACLOTIDE
  8. LYRICA [Concomitant]
     Active Substance: PREGABALIN
  9. VALSARTAN [Concomitant]
     Active Substance: VALSARTAN
  10. OLANZAPINE [Concomitant]
     Active Substance: OLANZAPINE
  11. ONDANSETRON [Concomitant]
     Active Substance: ONDANSETRON
  12. OXYCODONE [Concomitant]
     Active Substance: OXYCODONE
  13. TACROLIMUS [Concomitant]
     Active Substance: TACROLIMUS
  14. TOUJEO [Concomitant]
     Active Substance: INSULIN GLARGINE

REACTIONS (7)
  - Death [Fatal]
  - Dyspepsia [Unknown]
  - Peripheral swelling [Unknown]
  - Dysuria [Unknown]
  - Decreased appetite [Unknown]
  - Fatigue [Unknown]
  - Diarrhoea [Unknown]

NARRATIVE: CASE EVENT DATE: 20240723
